FAERS Safety Report 6081275-2 (Version None)
Quarter: 2009Q1

REPORT INFORMATION
  Report Type: 
  Country: None (occurrence: None)
  Receive Date: 20090213
  Receipt Date: 20090203
  Transmission Date: 20090719
  Serious: Yes (Hospitalization)
  Sender: FDA-Public Use
  Company Number: KV200900158

PATIENT
  Age: 67 Year
  Sex: Female

DRUGS (13)
  1. ISOSORBIDE MONONITRATE [Suspect]
     Indication: HYPERTENSION
     Dosage: 60 MG, QD, ORAL
     Route: 048
     Dates: end: 20081001
  2. DEPAKOTE [Concomitant]
  3. TRICOR [Concomitant]
  4. FENOFIBRATE [Concomitant]
  5. LEVOTHYTROXINE SODIUM [Concomitant]
  6. NEURONTIN [Concomitant]
  7. PERCOCET [Concomitant]
  8. TRAZODONE HYDROCHLORIDE [Concomitant]
  9. CLARITIN [Concomitant]
  10. ZOCOR [Concomitant]
  11. COREG(CARAVEDILOL) [Concomitant]
  12. PLAVIX [Concomitant]
  13. NOVOLOG [Concomitant]

REACTIONS (10)
  - ABDOMINAL PAIN LOWER [None]
  - ABDOMINAL PAIN UPPER [None]
  - ASTHENIA [None]
  - ATRIAL FIBRILLATION [None]
  - BLOOD PRESSURE DECREASED [None]
  - CHEST DISCOMFORT [None]
  - DIVERTICULITIS [None]
  - PRODUCT QUALITY ISSUE [None]
  - RENAL DISORDER [None]
  - STENT PLACEMENT [None]
